FAERS Safety Report 7313518-9 (Version None)
Quarter: 2011Q1

REPORT INFORMATION
  Report Type: 
  Country: None (occurrence: None)
  Receive Date: 20110225
  Receipt Date: 20101011
  Transmission Date: 20110831
  Serious: No
  Sender: FDA-Public Use
  Company Number: US-MYLANLABS-2010S1017181

PATIENT
  Age: 57 Year
  Sex: Female

DRUGS (5)
  1. INSULIN GLARGINE [Suspect]
     Indication: DIABETES MELLITUS
     Route: 058
     Dates: start: 20070101
  2. INSULIN GLARGINE [Suspect]
     Route: 058
  3. METFORMIN HCL [Suspect]
     Indication: DIABETES MELLITUS
     Route: 048
  4. INSULIN GLARGINE [Suspect]
     Route: 058
  5. METOPROLOL SUCCINATE [Concomitant]

REACTIONS (4)
  - BLOOD GLUCOSE DECREASED [None]
  - TREMOR [None]
  - SOMNOLENCE [None]
  - MALAISE [None]
